FAERS Safety Report 9052740 (Version 1)
Quarter: 2013Q1

REPORT INFORMATION
  Report Type: Spontaneous
  Country: IN (occurrence: IN)
  Receive Date: 20130207
  Receipt Date: 20130207
  Transmission Date: 20140127
  Serious: Yes (Other)
  Sender: FDA-Public Use
  Company Number: IN-AMGEN-INDSP2013008661

PATIENT
  Age: 30 Year
  Sex: Female

DRUGS (5)
  1. PEGFILGRASTIM [Suspect]
     Indication: PROPHYLAXIS
     Dosage: 6 MUG, UNK ,24 HOURS AFTER CHEMOTHERAPY
     Route: 058
  2. TAXOTERE [Concomitant]
     Indication: BREAST CANCER
     Dosage: UNK
  3. TAXOTERE [Concomitant]
     Indication: METASTATIC GASTRIC CANCER
  4. ADRIAMYCIN                         /00330901/ [Concomitant]
     Indication: BREAST CANCER
     Dosage: UNK
  5. ADRIAMYCIN                         /00330901/ [Concomitant]
     Indication: METASTATIC GASTRIC CANCER

REACTIONS (1)
  - Febrile neutropenia [Recovered/Resolved]
